FAERS Safety Report 5750905-4 (Version None)
Quarter: 2008Q2

REPORT INFORMATION
  Report Type: 
  Country: None (occurrence: None)
  Receive Date: 20080528
  Receipt Date: 20080519
  Transmission Date: 20081010
  Serious: Yes (Other)
  Sender: FDA-Public Use
  Company Number: JP-ROCHE-565196

PATIENT
  Sex: Female

DRUGS (3)
  1. XELODA [Suspect]
     Dosage: GIVEN FOR 3 WEEKS FOLLOWED BY A ONE WEEK REST PERIOD, REPEATED EVERY 4 WEEKS.
     Route: 048
  2. TRASTUZUMAB [Suspect]
     Dosage: INITIAL LOADING DOSE
     Route: 042
  3. TRASTUZUMAB [Suspect]
     Dosage: WEEKLY
     Route: 042

REACTIONS (1)
  - INTERSTITIAL LUNG DISEASE [None]
